FAERS Safety Report 4952691-4 (Version None)
Quarter: 2006Q1

REPORT INFORMATION
  Report Type: 
  Country: None (occurrence: None)
  Receive Date: 20060321
  Receipt Date: 20060306
  Transmission Date: 20060701
  Serious: Yes (Death)
  Sender: FDA-Public Use
  Company Number: 2006-BP-02544RO

PATIENT
  Age: 5 Month
  Sex: Female

DRUGS (1)
  1. METHADONE HCL [Suspect]
     Dosage: PO
     Route: 048

REACTIONS (4)
  - CONVULSION [None]
  - INTENTIONAL DRUG MISUSE [None]
  - INTRACRANIAL PRESSURE INCREASED [None]
  - RESPIRATORY DEPRESSION [None]
